FAERS Safety Report 12639365 (Version 1)
Quarter: 2016Q3

REPORT INFORMATION
  Report Type: Spontaneous
  Country: US (occurrence: None)
  Receive Date: 20160809
  Receipt Date: 20160809
  Transmission Date: 20161109
  Serious: Yes (Death)
  Sender: FDA-Public Use
  Company Number: None

PATIENT
  Age: 24 Year
  Sex: Male

DRUGS (5)
  1. MIRTAZAPINE. [Suspect]
     Active Substance: MIRTAZAPINE
  2. MITRAGYNINE [Suspect]
     Active Substance: MITRAGYNINE
  3. VENLAFAXINE [Suspect]
     Active Substance: VENLAFAXINE HYDROCHLORIDE
  4. DIPHENHYDRAMINE. [Suspect]
     Active Substance: DIPHENHYDRAMINE
  5. ETHANOL [Suspect]
     Active Substance: ALCOHOL

REACTIONS (7)
  - Urinary retention [None]
  - Toxicity to various agents [None]
  - Accidental death [None]
  - Fatigue [None]
  - Unresponsive to stimuli [None]
  - Pulmonary oedema [None]
  - Depression [None]

NARRATIVE: CASE EVENT DATE: 20140527
